FAERS Safety Report 24715942 (Version 1)
Quarter: 2024Q4

REPORT INFORMATION
  Report Type: Spontaneous
  Country: RS (occurrence: RS)
  Receive Date: 20241210
  Receipt Date: 20241210
  Transmission Date: 20250114
  Serious: Yes (Death, Hospitalization)
  Sender: STRIDES
  Company Number: RS-STRIDES ARCOLAB LIMITED-2024SP016294

PATIENT
  Age: 39 Year
  Sex: Male

DRUGS (3)
  1. DIAZEPAM [Suspect]
     Active Substance: DIAZEPAM
     Indication: Product used for unknown indication
     Dosage: UNK
     Route: 048
  2. HALOPERIDOL [Suspect]
     Active Substance: HALOPERIDOL
     Indication: Product used for unknown indication
     Dosage: UNK
     Route: 048
  3. VALPROIC ACID [Suspect]
     Active Substance: VALPROIC ACID
     Indication: Product used for unknown indication
     Dosage: UNK
     Route: 048

REACTIONS (8)
  - Coma [Fatal]
  - Hypotension [Fatal]
  - Hyperglycaemia [Fatal]
  - Respiratory failure [Fatal]
  - Cardiac arrest [Fatal]
  - Completed suicide [Fatal]
  - Pneumonia [Fatal]
  - Intentional overdose [Fatal]
